FAERS Safety Report 8470271-3 (Version None)
Quarter: 2012Q2

REPORT INFORMATION
  Report Type: 
  Country: None (occurrence: None)
  Receive Date: 20120627
  Receipt Date: 20120622
  Transmission Date: 20120825
  Serious: Yes (Hospitalization)
  Sender: FDA-Public Use
  Company Number: IT-SANOFI-AVENTIS-2012SA044914

PATIENT
  Age: 83 Year
  Sex: Female

DRUGS (10)
  1. LANSOPRAZOLE [Suspect]
     Route: 065
     Dates: start: 20120101
  2. DILTIAZEM HCL [Concomitant]
  3. FUROSEMIDE [Concomitant]
  4. GLICLAZIDE [Concomitant]
  5. METFORMIN HYDROCHLORIDE [Concomitant]
     Dosage: STRENGTH: 500 MG
  6. POTASSIUM CANRENOATE [Concomitant]
  7. TRENTAL [Suspect]
     Route: 048
     Dates: start: 20120101, end: 20120528
  8. COUMADIN [Suspect]
     Route: 048
     Dates: start: 20120101, end: 20120522
  9. TELMISARTAN [Concomitant]
     Dosage: STRENGTH:20 MG
     Route: 048
  10. LANOXIN [Concomitant]
     Dosage: STRENGTH: 0.125 MG

REACTIONS (1)
  - INTERNATIONAL NORMALISED RATIO INCREASED [None]
